FAERS Safety Report 21926223 (Version 1)
Quarter: 2023Q1

REPORT INFORMATION
  Report Type: Report from Study
  Country: US (occurrence: None)
  Receive Date: 20230130
  Receipt Date: 20230130
  Transmission Date: 20230417
  Serious: Yes (Hospitalization)
  Sender: FDA-Public Use
  Company Number: US-Eisai Medical Research-EC-2023-132730

PATIENT
  Age: 72 Year
  Sex: Female

DRUGS (2)
  1. LENVIMA [Suspect]
     Active Substance: LENVATINIB
     Indication: Endometrial cancer
     Route: 048
     Dates: start: 20220821, end: 20220915
  2. LENVIMA [Suspect]
     Active Substance: LENVATINIB
     Dosage: MISSED 1 DOSE ON 9/24/2022 AND 1 DOSE ON OCT/03/2022
     Route: 048
     Dates: start: 20220916, end: 202212

REACTIONS (2)
  - Atrial fibrillation [Unknown]
  - Cardiac failure congestive [Recovering/Resolving]

NARRATIVE: CASE EVENT DATE: 20221202
